FAERS Safety Report 13027752 (Version 2)
Quarter: 2017Q1

REPORT INFORMATION
  Report Type: Report from Study
  Country: CA (occurrence: CA)
  Receive Date: 20161214
  Receipt Date: 20170210
  Transmission Date: 20170428
  Serious: Yes (Death)
  Sender: FDA-Public Use
  Company Number: CA-HLSUS-2016-CA-000736

PATIENT
  Age: 52 Year
  Sex: Male
  Weight: 80 kg

DRUGS (2)
  1. CLOZARIL [Suspect]
     Active Substance: CLOZAPINE
     Indication: SCHIZOPHRENIA
     Dosage: 450 MG DAILY
     Route: 048
     Dates: start: 20120508, end: 20161208
  2. ATROPINE 1% [Concomitant]
     Active Substance: ATROPINE
     Indication: SALIVARY HYPERSECRETION
     Dosage: MORE THAN 40 YEARS-2 DROPS
     Route: 060
     Dates: end: 20161208

REACTIONS (4)
  - Myocardial infarction [Fatal]
  - Transitional cell carcinoma [Unknown]
  - Depression [Unknown]
  - Akathisia [Unknown]
